FAERS Safety Report 11234248 (Version 1)
Quarter: 2015Q3

REPORT INFORMATION
  Report Type: Report from Study
  Country: CA (occurrence: CA)
  Receive Date: 20150702
  Receipt Date: 20150702
  Transmission Date: 20151125
  Serious: Yes (Other)
  Sender: FDA-Public Use
  Company Number: CA-JNJFOC-20150622309

PATIENT
  Age: 79 Year
  Sex: Male
  Weight: 58 kg

DRUGS (2)
  1. KETOCONAZOLE. [Concomitant]
     Active Substance: KETOCONAZOLE
     Dosage: FOR 2.5 MONTHS
     Route: 065
     Dates: start: 20150528
  2. REMICADE [Suspect]
     Active Substance: INFLIXIMAB
     Indication: PSORIASIS
     Route: 042
     Dates: start: 20150325

REACTIONS (1)
  - Prostatic specific antigen increased [Not Recovered/Not Resolved]

NARRATIVE: CASE EVENT DATE: 20150528
